FAERS Safety Report 9113934 (Version 3)
Quarter: 2013Q2

REPORT INFORMATION
  Report Type: Spontaneous
  Country: US (occurrence: US)
  Receive Date: 20130129
  Receipt Date: 20130613
  Transmission Date: 20140414
  Serious: No
  Sender: FDA-Public Use
  Company Number: US-PFIZER INC-2013034321

PATIENT
  Age: 75 Year
  Sex: Female
  Weight: 51 kg

DRUGS (2)
  1. LEVOXYL [Suspect]
     Indication: HYPOTHYROIDISM
     Dosage: 75 UG, 1X/DAY
     Route: 048
     Dates: start: 2009, end: 201303
  2. LEVOXYL [Suspect]
     Dosage: 50 UG, 1X/DAY
     Route: 048
     Dates: start: 201304

REACTIONS (2)
  - Thyroid function test abnormal [Unknown]
  - Drug ineffective [Unknown]
